FAERS Safety Report 9437679 (Version 1)
Quarter: 2013Q3

REPORT INFORMATION
  Report Type: Spontaneous
  Country: US (occurrence: US)
  Receive Date: 20130802
  Receipt Date: 20130802
  Transmission Date: 20140515
  Serious: Yes (Hospitalization, Other)
  Sender: FDA-Public Use
  Company Number: US-ELI_LILLY_AND_COMPANY-US201307009490

PATIENT
  Age: 50 Year
  Sex: Female
  Weight: 82.99 kg

DRUGS (1)
  1. INSULIN HUMAN [Suspect]
     Dosage: UNK UNK, PRN
     Route: 058

REACTIONS (9)
  - Somnolence [Recovered/Resolved]
  - Incoherent [Recovered/Resolved]
  - Hemiplegia [Recovered/Resolved]
  - Dysarthria [Recovered/Resolved]
  - Blood glucose decreased [Recovered/Resolved]
  - Visual acuity reduced [Not Recovered/Not Resolved]
  - Blood glucose increased [Recovered/Resolved]
  - Blood glucose decreased [Recovered/Resolved]
  - Wrong technique in drug usage process [Not Recovered/Not Resolved]
